FAERS Safety Report 9912688 (Version 2)
Quarter: 2014Q1

REPORT INFORMATION
  Report Type: Spontaneous
  Country: BR (occurrence: None)
  Receive Date: 20140212
  Receipt Date: 20140306
  Transmission Date: 20141002
  Serious: Yes (Hospitalization, Other)
  Sender: FDA-Public Use
  Company Number: DSJ-2014-02477

PATIENT
  Age: 10 Decade
  Sex: Female
  Weight: 50 kg

DRUGS (6)
  1. BENICAR [Suspect]
     Indication: HYPERTENSION
     Route: 048
     Dates: start: 2011
  2. AMLODIPINE (AMLODIPINE) (AMLODIPINE) [Suspect]
     Indication: HYPERTENSION
     Route: 048
     Dates: start: 2011
  3. CILOSTAZOL (CILOSTAZOL) (CILOSTAZOL) [Concomitant]
  4. GLIMEPIRIDE (GLIMEPIRIDE) (GLIMEPIRIDE) [Concomitant]
  5. VITAMINC (ASCORBIC ACID) (ASCORBIC ACID) [Concomitant]
  6. OLANZAPINE (OLANZAPINE) (OLANZAPINE) [Concomitant]

REACTIONS (19)
  - Asthenia [None]
  - Anxiety [None]
  - Cachexia [None]
  - Dysphagia [None]
  - Abnormal behaviour [None]
  - Tremor [None]
  - Transient ischaemic attack [None]
  - Wrong technique in drug usage process [None]
  - Eye movement disorder [None]
  - Movement disorder [None]
  - Drug administration error [None]
  - Anxiety [None]
  - Nervous system disorder [None]
  - Muscle spasms [None]
  - Neoplasm malignant [None]
  - Body height decreased [None]
  - Urinary tract infection [None]
  - Urine odour abnormal [None]
  - Blood pressure diastolic decreased [None]
